FAERS Safety Report 7435917-7 (Version None)
Quarter: 2011Q2

REPORT INFORMATION
  Report Type: 
  Country: None (occurrence: None)
  Receive Date: 20110418
  Receipt Date: 20110401
  Transmission Date: 20111010
  Serious: Yes (Hospitalization)
  Sender: FDA-Public Use
  Company Number: 030685

PATIENT
  Sex: Female
  Weight: 170.1 kg

DRUGS (13)
  1. MAGNESIUM OXIDE [Concomitant]
  2. GABAPENTIN [Concomitant]
  3. PERCOCET-5 [Concomitant]
  4. ENTOCORT EC [Concomitant]
  5. VITAMIN D [Concomitant]
  6. ADVAIR DISKUS 100/50 [Concomitant]
  7. DILTIAZEM [Concomitant]
  8. PREDNISONE [Concomitant]
  9. BUDESONIDE [Concomitant]
  10. DICYCLOMINE [Concomitant]
  11. CIMZIA [Suspect]
     Indication: CROHN'S DISEASE
     Dosage: 400 MG 1X/2 WEEKS SUBCUTANEOUS, 400 MG 1X/MONTH, SUBCUTANEOUS
     Route: 058
     Dates: start: 20100303, end: 20100330
  12. CIMZIA [Suspect]
     Indication: CROHN'S DISEASE
     Dosage: 400 MG 1X/2 WEEKS SUBCUTANEOUS, 400 MG 1X/MONTH, SUBCUTANEOUS
     Route: 058
     Dates: start: 20100427
  13. OXYCODONE [Concomitant]

REACTIONS (3)
  - DIVERTICULITIS [None]
  - CONDITION AGGRAVATED [None]
  - ASTHMA [None]
